FAERS Safety Report 6135360-7 (Version None)
Quarter: 2009Q1

REPORT INFORMATION
  Report Type: 
  Country: None (occurrence: None)
  Receive Date: 20090327
  Receipt Date: 20090326
  Transmission Date: 20090719
  Serious: Yes (Death)
  Sender: FDA-Public Use
  Company Number: JP-ABBOTT-09P-087-0564594-00

PATIENT
  Age: 46 Year
  Sex: Male

DRUGS (11)
  1. LEUPROLIDE ACETATE [Suspect]
     Indication: PROSTATE CANCER STAGE IV
     Route: 058
     Dates: start: 20070312, end: 20080221
  2. LEUPROLIDE ACETATE [Suspect]
     Dates: start: 20070114, end: 20070213
  3. FLUTAMIDE [Concomitant]
     Indication: PROSTATE CANCER STAGE IV
     Route: 048
     Dates: start: 20070607, end: 20071210
  4. FLUTAMIDE [Concomitant]
     Route: 048
     Dates: start: 20080317, end: 20080330
  5. MAGMITT [Concomitant]
     Indication: CONSTIPATION
     Route: 048
  6. MAGMITT [Concomitant]
     Route: 048
     Dates: end: 20080331
  7. FERROMIA [Concomitant]
     Indication: ANAEMIA
     Route: 048
     Dates: start: 20071011, end: 20071210
  8. CASODEX [Concomitant]
     Indication: PROSTATE CANCER STAGE IV
     Route: 048
     Dates: end: 20080314
  9. CASODEX [Concomitant]
     Dates: start: 20080110, end: 20080316
  10. OXYCONTIN [Concomitant]
     Indication: PAIN
     Route: 048
  11. OXYCONTIN [Concomitant]
     Route: 048
     Dates: end: 20080331

REACTIONS (1)
  - PROSTATE CANCER STAGE IV [None]
